FAERS Safety Report 4835509-X (Version None)
Quarter: 2005Q4

REPORT INFORMATION
  Report Type: 
  Country: None (occurrence: None)
  Receive Date: 20051121
  Receipt Date: 20051107
  Transmission Date: 20060501
  Serious: Yes (Death, Other)
  Sender: FDA-Public Use
  Company Number: 2005107366

PATIENT
  Age: 43 Year
  Sex: Male

DRUGS (4)
  1. NEURONTIN [Suspect]
     Indication: DEPRESSION
     Dates: start: 20030321
  2. RISPERDAL [Concomitant]
     Indication: DEPRESSION
     Dates: start: 20030321
  3. PAXIL [Concomitant]
  4. TRAZODONE HCL [Concomitant]

REACTIONS (20)
  - BONE DISORDER [None]
  - BRAIN STEM SYNDROME [None]
  - COMPLETED SUICIDE [None]
  - DRUG INEFFECTIVE [None]
  - EXCORIATION [None]
  - HAEMATOMA [None]
  - HAEMOTHORAX [None]
  - HEPATIC TRAUMA [None]
  - INJURY [None]
  - INTRAVENTRICULAR HAEMORRHAGE [None]
  - LUNG INJURY [None]
  - PULMONARY HAEMORRHAGE [None]
  - RADIUS FRACTURE [None]
  - RIB FRACTURE [None]
  - SKULL FRACTURE [None]
  - SOFT TISSUE DISORDER [None]
  - SPLENIC INJURY [None]
  - SUBARACHNOID HAEMORRHAGE [None]
  - SUBDURAL HAEMORRHAGE [None]
  - ULNA FRACTURE [None]
